FAERS Safety Report 9467703 (Version 1)
Quarter: 2013Q3

REPORT INFORMATION
  Report Type: Spontaneous
  Country: US (occurrence: None)
  Receive Date: 20130819
  Receipt Date: 20130819
  Transmission Date: 20140515
  Serious: Yes (Disabling)
  Sender: FDA-Public Use
  Company Number: None

PATIENT
  Age: 61 Year
  Sex: Female
  Weight: 62.14 kg

DRUGS (1)
  1. CIPRO [Suspect]
     Indication: URINARY TRACT INFECTION
     Dosage: 1    TWICE DAILY  TAKEN BY MOUTH?5 DOSES
     Route: 048

REACTIONS (5)
  - Nausea [None]
  - Influenza like illness [None]
  - Vision blurred [None]
  - Back pain [None]
  - Arthralgia [None]
